FAERS Safety Report 23617059 (Version 1)
Quarter: 2024Q1

REPORT INFORMATION
  Report Type: Spontaneous
  Country: BR (occurrence: BR)
  Receive Date: 20240311
  Receipt Date: 20240311
  Transmission Date: 20240410
  Serious: Yes (Other)
  Sender: FDA-Public Use
  Company Number: BR-002147023-NVSC2024BR038301

PATIENT
  Age: 73 Year
  Sex: Female
  Weight: 83.7 kg

DRUGS (7)
  1. DIOVAN HCT [Suspect]
     Active Substance: HYDROCHLOROTHIAZIDE\VALSARTAN
     Indication: Hypertension
     Dosage: 1 DOSAGE FORM, QD (1 TABLET 320+12.5 MG DAILY START DATE: 2YEARS AGO)
     Route: 048
  2. DIOVAN [Suspect]
     Active Substance: VALSARTAN
     Indication: Hypertension
     Dosage: 160 MG, QD (START DATE: MORE THAN 10 YEARS AGO AND STOP DATE: 2 YEARS AGO)
     Route: 048
  3. AMLODIPINE [Suspect]
     Active Substance: AMLODIPINE BESYLATE
     Indication: Hypertension
     Dosage: 1 DOSAGE FORM, QD (1 TABLET)
     Route: 048
     Dates: start: 202307
  4. EZETIMIBE [Concomitant]
     Active Substance: EZETIMIBE
     Indication: Hyperlipidaemia
     Dosage: 1 DOSAGE FORM, QD (START DATE 3 YEARS AGO) (1 TABLET)
     Route: 048
  5. PITAVASTATIN [Concomitant]
     Active Substance: PITAVASTATIN
     Indication: Hyperlipidaemia
     Dosage: 1 DOSAGE FORM, QD (1 TABLET, 1 OR SO AGO)
     Route: 048
  6. PREGABALIN [Concomitant]
     Active Substance: PREGABALIN
     Indication: Fibromyalgia
     Dosage: 1 DOSAGE FORM, QD ( 1 TABLET, MORE THAN 2 YEARS AGO)
     Route: 048
  7. NORTRIPTYLINE HYDROCHLORIDE [Concomitant]
     Active Substance: NORTRIPTYLINE HYDROCHLORIDE
     Indication: Fibromyalgia
     Dosage: 1 DOSAGE FORM, QD (1 TABLET 1 YEAR OR SO AGO)
     Route: 048

REACTIONS (5)
  - Uterine leiomyoma [Recovered/Resolved]
  - Fibromyalgia [Recovering/Resolving]
  - Drug ineffective [Recovered/Resolved]
  - Erythema [Not Recovered/Not Resolved]
  - Product availability issue [Unknown]

NARRATIVE: CASE EVENT DATE: 20240119
